FAERS Safety Report 4543805-9 (Version None)
Quarter: 2005Q1

REPORT INFORMATION
  Report Type: 
  Country: None (occurrence: None)
  Receive Date: 20050103
  Receipt Date: 20031023
  Transmission Date: 20050727
  Serious: Yes (Hospitalization, Disabling)
  Sender: FDA-Public Use
  Company Number: GXKR2003US00539

PATIENT
  Age: 9 Year
  Sex: Female

DRUGS (2)
  1. IBUPROFEN [Suspect]
     Indication: VIRAL INFECTION
     Dosage: LOWER THAN 10 MG/KG, TID
  2. ACETAMINOPHEN [Concomitant]

REACTIONS (4)
  - LIVER DISORDER [None]
  - PANCREATITIS [None]
  - STEVENS-JOHNSON SYNDROME [None]
  - VANISHING BILE DUCT SYNDROME [None]
